FAERS Safety Report 17716157 (Version 3)
Quarter: 2020Q2

REPORT INFORMATION
  Report Type: Spontaneous
  Country: IT (occurrence: IT)
  Receive Date: 20200428
  Receipt Date: 20200514
  Transmission Date: 20200714
  Serious: Yes (Life-Threatening, Hospitalization, Congenital Anomaly, Other)
  Sender: FDA-Public Use
  Company Number: IT-SUN PHARMACEUTICAL INDUSTRIES LTD-2020RR-245416

PATIENT
  Age: 33 Week
  Sex: Female
  Weight: 2.02 kg

DRUGS (9)
  1. LORAZEPAM. [Concomitant]
     Active Substance: LORAZEPAM
     Indication: PANIC ATTACK
     Dosage: 10 GTT, DAILY
     Route: 064
  2. SERTRALINE [Suspect]
     Active Substance: SERTRALINE HYDROCHLORIDE
     Indication: PANIC ATTACK
     Dosage: DURING PREGNANCY
     Route: 064
  3. DIAZEPAM. [Concomitant]
     Active Substance: DIAZEPAM
     Indication: PANIC ATTACK
     Dosage: 1 MILLIGRAM, DAILY
     Route: 064
  4. DIAZEPAM. [Concomitant]
     Active Substance: DIAZEPAM
     Dosage: 2 MILLIGRAM, DAILY
     Route: 064
  5. PARACETAMOL [Interacting]
     Active Substance: ACETAMINOPHEN
     Dosage: IN THE FIRST TRIMESTER; SHE TOOK PARACETAMOL 2-4 GRAM/DAY IN THE FIRST TRIMESTER
     Route: 064
  6. PARACETAMOL [Interacting]
     Active Substance: ACETAMINOPHEN
     Indication: HEADACHE
     Dosage: OCCASIONALLY IN THE SECOND AND THIRD TRIMESTER; ABOUT 4 OR 5 DAYS A WEEK 9 IN THE SECOND TRIMESTER 1
     Route: 064
  7. PARACETAMOL [Interacting]
     Active Substance: ACETAMINOPHEN
     Dosage: OCCASIONALLY IN THE SECOND AND THIRD TRIMESTER; ABOUT 4 OR 5 DAYS A WEEK 9 IN THE SECOND TRIMESTER 1
     Route: 064
  8. PARACETAMOL [Interacting]
     Active Substance: ACETAMINOPHEN
     Dosage: IN THE FIRST TRIMESTER; SHE TOOK PARACETAMOL 2-4 GRAM/DAY IN THE FIRST TRIMESTER
     Route: 064
  9. PARACETAMOL [Interacting]
     Active Substance: ACETAMINOPHEN
     Route: 064

REACTIONS (11)
  - Drug interaction [Recovered/Resolved]
  - Foetal exposure during pregnancy [Recovered/Resolved]
  - Ductus arteriosus premature closure [Recovered/Resolved]
  - Cardiac dysfunction [Recovered/Resolved]
  - Pulmonary valve incompetence [Unknown]
  - Tricuspid valve incompetence [Recovered/Resolved]
  - Right ventricular dilatation [Recovered/Resolved]
  - Cardiomegaly [Recovered/Resolved]
  - Pulmonary hypertension [Recovering/Resolving]
  - Hypoxia [Recovered/Resolved]
  - Right ventricular hypertrophy [Recovered/Resolved]
